FAERS Safety Report 16855664 (Version 2)
Quarter: 2019Q3

REPORT INFORMATION
  Report Type: Spontaneous
  Country: ES (occurrence: ES)
  Receive Date: 20190926
  Receipt Date: 20190926
  Transmission Date: 20191005
  Serious: Yes (Hospitalization, Other)
  Sender: FDA-Public Use
  Company Number: ES-PFIZER INC-2019398182

PATIENT
  Age: 26 Year
  Sex: Male

DRUGS (9)
  1. MIDAZOLAM [Concomitant]
     Active Substance: MIDAZOLAM HYDROCHLORIDE
     Indication: SEDATION
     Dosage: UNK
  2. DEXMEDETOMIDINE. [Concomitant]
     Active Substance: DEXMEDETOMIDINE
     Indication: SEDATION
     Dosage: UNK
  3. DAPTOMYCIN. [Concomitant]
     Active Substance: DAPTOMYCIN
     Indication: ANTIBIOTIC THERAPY
     Dosage: 560 MG, DAILY
     Route: 042
  4. PROPOFOL. [Concomitant]
     Active Substance: PROPOFOL
     Indication: SEDATION
     Dosage: UNK
     Route: 065
  5. MEROPENEM. [Suspect]
     Active Substance: MEROPENEM
     Indication: ANTIBIOTIC THERAPY
     Dosage: 1 G, 3X/DAY (EVERY 8 HRS)
     Route: 042
  6. OLANZAPINE. [Concomitant]
     Active Substance: OLANZAPINE
     Indication: WITHDRAWAL SYNDROME
     Dosage: 5 MG, 3X/DAY (EVERY 8 HRS)
     Route: 065
  7. CLONAZEPAM. [Concomitant]
     Active Substance: CLONAZEPAM
     Indication: WITHDRAWAL SYNDROME
     Dosage: 2 MG, 4X/DAY (EVERY 6 HRS)
  8. CLINDAMYCIN. [Concomitant]
     Active Substance: CLINDAMYCIN
     Indication: ANTIBIOTIC THERAPY
     Dosage: 600 MG, 2X/DAY (EVERY 12 HRS)
     Route: 042
  9. GABAPENTIN. [Concomitant]
     Active Substance: GABAPENTIN
     Indication: WITHDRAWAL SYNDROME
     Dosage: 800 MG, 3X/DAY (EVERY 8 HRS)

REACTIONS (1)
  - Drug-induced liver injury [Unknown]
